FAERS Safety Report 6368665-5 (Version None)
Quarter: 2009Q3

REPORT INFORMATION
  Report Type: 
  Country: None (occurrence: None)
  Receive Date: 20090919
  Receipt Date: 20090919
  Transmission Date: 20100115
  Serious: Yes (Other)
  Sender: FDA-Public Use
  Company Number: None

PATIENT
  Sex: Female
  Weight: 45.3597 kg

DRUGS (1)
  1. KENALOG [Suspect]
     Dosage: 40MG ONCE IM
     Route: 030

REACTIONS (4)
  - INJECTION SITE ATROPHY [None]
  - INJECTION SITE REACTION [None]
  - INJECTION SITE ULCER [None]
  - SKIN DISCOLOURATION [None]
